FAERS Safety Report 7627638-2 (Version None)
Quarter: 2011Q3

REPORT INFORMATION
  Report Type: 
  Country: None (occurrence: None)
  Receive Date: 20110721
  Receipt Date: 20110715
  Transmission Date: 20111222
  Serious: Yes (Death)
  Sender: FDA-Public Use
  Company Number: MY-PFIZER INC-2010168293

PATIENT
  Age: 50 Year
  Sex: Male

DRUGS (2)
  1. SUTENT [Suspect]
     Indication: METASTATIC RENAL CELL CARCINOMA
     Dosage: UNK
     Route: 048
     Dates: start: 20090706, end: 20090920
  2. MORPHINE [Concomitant]
     Indication: PAIN

REACTIONS (2)
  - METASTATIC RENAL CELL CARCINOMA [None]
  - DISEASE PROGRESSION [None]
